FAERS Safety Report 4902073-6 (Version None)
Quarter: 2006Q1

REPORT INFORMATION
  Report Type: 
  Country: None (occurrence: None)
  Receive Date: 20060206
  Receipt Date: 20051121
  Transmission Date: 20060701
  Serious: Yes (Hospitalization, Other)
  Sender: FDA-Public Use
  Company Number: JP-JPN-A20052830

PATIENT
  Age: 76 Year
  Sex: Male

DRUGS (8)
  1. ZEFIX [Suspect]
     Indication: HEPATITIS B
     Dosage: 100MG PER DAY
     Route: 048
     Dates: start: 20051021, end: 20051023
  2. ZEFIX [Suspect]
     Dosage: 50MG PER DAY
     Route: 048
     Dates: start: 20051023, end: 20051102
  3. ZEFIX [Suspect]
     Dosage: 100MG PER DAY
     Route: 048
     Dates: start: 20051103, end: 20051109
  4. PARIET [Suspect]
     Indication: GASTRITIS
     Dosage: 10MG PER DAY
     Route: 048
     Dates: start: 20051102, end: 20051118
  5. LACTULOSE [Concomitant]
     Indication: HEPATIC ENCEPHALOPATHY
     Dosage: 30ML PER DAY
     Route: 048
     Dates: start: 20051102
  6. POLYMYXIN B SULFATE [Concomitant]
     Dosage: 3000IU3 PER DAY
     Route: 048
     Dates: start: 20051102, end: 20051120
  7. TORSEMIDE [Concomitant]
     Indication: CARDIAC FAILURE
     Dosage: 4MG PER DAY
     Route: 048
     Dates: start: 20051117, end: 20051219
  8. MUCOSTA [Concomitant]
     Indication: GASTRITIS
     Dosage: 300MG PER DAY
     Route: 048
     Dates: start: 20051121

REACTIONS (11)
  - ALANINE AMINOTRANSFERASE INCREASED [None]
  - ASPARTATE AMINOTRANSFERASE INCREASED [None]
  - BLOOD ALBUMIN DECREASED [None]
  - BLOOD BILIRUBIN INCREASED [None]
  - HAEMATOCRIT DECREASED [None]
  - HAEMOGLOBIN DECREASED [None]
  - PANCYTOPENIA [None]
  - PLATELET COUNT DECREASED [None]
  - PROTHROMBIN LEVEL DECREASED [None]
  - RED BLOOD CELL COUNT DECREASED [None]
  - WHITE BLOOD CELL COUNT INCREASED [None]
